FAERS Safety Report 9858996 (Version 1)
Quarter: 2014Q1

REPORT INFORMATION
  Report Type: Spontaneous
  Country: US (occurrence: US)
  Receive Date: 20140131
  Receipt Date: 20140131
  Transmission Date: 20141002
  Serious: Yes (Death)
  Sender: FDA-Public Use
  Company Number: CHPA2014US001808

PATIENT
  Age: 22 Year
  Sex: Male

DRUGS (9)
  1. ACETAMINOPHEN (PARACETAMOL) [Suspect]
     Dosage: UNK
     Route: 065
  2. HEROIN [Suspect]
     Dosage: UNK
     Route: 065
  3. HYDROCODONE [Suspect]
     Dosage: UNK
     Route: 065
  4. OXYCODONE [Suspect]
     Dosage: UNK
     Route: 065
  5. TRAMADOL [Suspect]
     Dosage: UNK
     Route: 065
  6. ALPRAZOLAM [Suspect]
     Dosage: UNK
     Route: 065
  7. CYCLOBENZAPRINE [Suspect]
     Dosage: UNK
     Route: 065
  8. DOXYLAMINE [Suspect]
     Dosage: UNK
     Route: 065
  9. PHENCYCLIDINE [Suspect]
     Dosage: UNK
     Route: 065

REACTIONS (1)
  - Intentional drug misuse [Fatal]
